FAERS Safety Report 4991114-6 (Version None)
Quarter: 2006Q2

REPORT INFORMATION
  Report Type: 
  Country: None (occurrence: None)
  Receive Date: 20060428
  Receipt Date: 20060418
  Transmission Date: 20061013
  Serious: Yes (Death, Other)
  Sender: FDA-Public Use
  Company Number: GXKR2006CA02208

PATIENT
  Sex: Male

DRUGS (5)
  1. HALOPERIDOL [Suspect]
     Indication: AGITATION
     Dosage: 5 MG, QD, INTRAMUSCYLAR
     Route: 030
     Dates: start: 20031101, end: 20031101
  2. COGENTIN [Suspect]
     Indication: PARKINSON'S DISEASE
     Dosage: 2.5 MG, QD, PARENTERAL
     Route: 051
     Dates: start: 20031101, end: 20031101
  3. ATIVAN [Concomitant]
  4. RISPERIDONE [Concomitant]
  5. RESTORIL [Concomitant]

REACTIONS (6)
  - CONDITION AGGRAVATED [None]
  - CONVULSION [None]
  - DEMENTIA ALZHEIMER'S TYPE [None]
  - HEART RATE INCREASED [None]
  - STRIDOR [None]
  - THROAT TIGHTNESS [None]
